FAERS Safety Report 10238662 (Version 1)
Quarter: 2014Q2

REPORT INFORMATION
  Report Type: Spontaneous
  Country: US (occurrence: US)
  Receive Date: 20140616
  Receipt Date: 20140616
  Transmission Date: 20141212
  Serious: No
  Sender: FDA-Public Use
  Company Number: US-ENDO PHARMACEUTICALS INC.-OPCR20140139

PATIENT
  Age: 25 Year
  Sex: Male

DRUGS (2)
  1. OPANA ER 20MG [Suspect]
     Indication: PAIN
     Route: 048
     Dates: start: 20140502
  2. SUBUTEX [Concomitant]
     Indication: PAIN
     Dosage: UNK
     Route: 065

REACTIONS (2)
  - Nausea [Unknown]
  - Drug ineffective [Not Recovered/Not Resolved]
